FAERS Safety Report 11322426 (Version 1)
Quarter: 2015Q3

REPORT INFORMATION
  Report Type: Spontaneous
  Country: US (occurrence: US)
  Receive Date: 20150730
  Receipt Date: 20150730
  Transmission Date: 20151125
  Serious: No
  Sender: FDA-Public Use
  Company Number: US-ASTRAZENECA-2015SE70890

PATIENT
  Age: 20101 Day
  Sex: Male
  Weight: 97.5 kg

DRUGS (5)
  1. FARXIGA [Suspect]
     Active Substance: DAPAGLIFLOZIN PROPANEDIOL
     Indication: TYPE 2 DIABETES MELLITUS
     Route: 048
     Dates: start: 20150623
  2. GABAPENTIN. [Concomitant]
     Active Substance: GABAPENTIN
     Indication: NEUROPATHY PERIPHERAL
  3. ADVIL [Concomitant]
     Active Substance: IBUPROFEN
     Dosage: 46,DAILY
  4. GLIMEPERIDE [Concomitant]
     Active Substance: GLIMEPIRIDE
  5. BYDUREON [Suspect]
     Active Substance: EXENATIDE
     Indication: TYPE 2 DIABETES MELLITUS
     Route: 058
     Dates: start: 20150623

REACTIONS (8)
  - Epigastric discomfort [Unknown]
  - Constipation [Unknown]
  - Hunger [Unknown]
  - Pain [Unknown]
  - Weight increased [Unknown]
  - Abdominal distension [Unknown]
  - Tenderness [Unknown]
  - Contusion [Unknown]

NARRATIVE: CASE EVENT DATE: 20150623
